FAERS Safety Report 10046684 (Version 2)
Quarter: 2014Q1

REPORT INFORMATION
  Report Type: Spontaneous
  Country: US (occurrence: US)
  Receive Date: 20140331
  Receipt Date: 20140331
  Transmission Date: 20141002
  Serious: Yes (Disabling)
  Sender: FDA-Public Use
  Company Number: US-GE HEALTHCARE MEDICAL DIAGNOSTICS-OSCN-PR-0710S-0414

PATIENT
  Age: 52 Year
  Sex: Male

DRUGS (12)
  1. OMNISCAN [Suspect]
     Indication: HEADACHE
     Route: 042
     Dates: start: 19990218, end: 19990218
  2. OMNISCAN [Suspect]
     Indication: BACK PAIN
     Route: 042
     Dates: start: 20050111, end: 20050111
  3. OMNISCAN [Suspect]
     Indication: BACK PAIN
     Route: 042
     Dates: start: 20050114, end: 20050114
  4. OMNISCAN [Suspect]
     Indication: NECK PAIN
     Route: 042
     Dates: start: 20050117, end: 20050117
  5. OMNISCAN [Suspect]
     Indication: PAIN
     Route: 042
     Dates: start: 20050120, end: 20050120
  6. OMNISCAN [Suspect]
     Indication: EXTRADURAL ABSCESS
     Route: 042
     Dates: start: 20050131, end: 20050131
  7. OMNISCAN [Suspect]
     Indication: PHARYNGEAL ABSCESS
     Route: 042
     Dates: start: 20050204, end: 20050204
  8. OMNISCAN [Suspect]
     Indication: PHARYNGEAL ABSCESS
     Route: 042
     Dates: start: 20050209, end: 20050209
  9. OMNISCAN [Suspect]
     Indication: PAIN
     Route: 042
     Dates: start: 20050214, end: 20050214
  10. OMNISCAN [Suspect]
     Indication: MENTAL STATUS CHANGES
     Route: 042
     Dates: start: 20050222, end: 20050222
  11. OMNISCAN [Suspect]
     Indication: BACK PAIN
     Route: 042
     Dates: start: 20050311, end: 20050311
  12. EPOGEN [Concomitant]
     Dates: start: 20021120

REACTIONS (1)
  - Nephrogenic systemic fibrosis [Not Recovered/Not Resolved]
